FAERS Safety Report 25708756 (Version 2)
Quarter: 2025Q3

REPORT INFORMATION
  Report Type: Spontaneous
  Country: US (occurrence: US)
  Receive Date: 20250821
  Receipt Date: 20250929
  Transmission Date: 20251020
  Serious: No
  Sender: KARYOPHARM THERAPEUTICS
  Company Number: US-KARYOPHARM-2025KPT100649

PATIENT

DRUGS (15)
  1. SELINEXOR [Suspect]
     Active Substance: SELINEXOR
     Indication: Plasma cell myeloma
     Route: 048
     Dates: start: 20250805, end: 2025
  2. DEXAMETHASONE [Concomitant]
     Active Substance: DEXAMETHASONE
  3. DUTASTERIDE [Concomitant]
     Active Substance: DUTASTERIDE
  4. ELIQUIS [Concomitant]
     Active Substance: APIXABAN
  5. LEVOTHYROXINE [Concomitant]
     Active Substance: LEVOTHYROXINE
  6. LIOTHYRONINE [Concomitant]
     Active Substance: LIOTHYRONINE
  7. METOPROLOL SUCCINATE [Concomitant]
     Active Substance: METOPROLOL SUCCINATE
  8. ONDANSETRON [Concomitant]
     Active Substance: ONDANSETRON
  9. POMALYST [Concomitant]
     Active Substance: POMALIDOMIDE
  10. PROCHLORPERAZINE MALEATE [Concomitant]
     Active Substance: PROCHLORPERAZINE MALEATE
  11. SPIRONOLACTONE [Concomitant]
     Active Substance: SPIRONOLACTONE
  12. TESTOSTERONE [Concomitant]
     Active Substance: TESTOSTERONE
  13. TIZANIDINE [Concomitant]
     Active Substance: TIZANIDINE
  14. TRAMADOL [Concomitant]
     Active Substance: TRAMADOL
  15. VALACYCLOVIR [Concomitant]
     Active Substance: VALACYCLOVIR HYDROCHLORIDE

REACTIONS (4)
  - Dyspnoea [Unknown]
  - Vision blurred [Unknown]
  - Ocular hyperaemia [Unknown]
  - Gait disturbance [Unknown]

NARRATIVE: CASE EVENT DATE: 20250101
